FAERS Safety Report 4440995-3 (Version None)
Quarter: 2004Q3

REPORT INFORMATION
  Report Type: 
  Country: None (occurrence: None)
  Receive Date: 20040728
  Receipt Date: 20040415
  Transmission Date: 20050211
  Serious: No
  Sender: FDA-Public Use
  Company Number: USA040465034

PATIENT
  Age: 48 Year
  Sex: Female
  Weight: 136 kg

DRUGS (1)
  1. STRATTERA [Suspect]
     Dosage: 40 MG IN THE MORNING
     Dates: start: 20040406

REACTIONS (3)
  - ABNORMAL DREAMS [None]
  - INSOMNIA [None]
  - THINKING ABNORMAL [None]
